FAERS Safety Report 17534736 (Version 1)
Quarter: 2020Q1

REPORT INFORMATION
  Report Type: Report from Study
  Country: US (occurrence: US)
  Receive Date: 20200312
  Receipt Date: 20200312
  Transmission Date: 20200409
  Serious: Yes (Other)
  Sender: FDA-Public Use
  Company Number: US-AMGEN-USASL2020039459

PATIENT
  Age: 57 Year
  Sex: Female

DRUGS (1)
  1. REPATHA [Suspect]
     Active Substance: EVOLOCUMAB
     Indication: HYPERLIPIDAEMIA
     Dosage: 140 MILLIGRAM, Q2WK
     Route: 065

REACTIONS (7)
  - Cough [Unknown]
  - Feeling abnormal [Unknown]
  - Chest pain [Recovered/Resolved]
  - Abdominal discomfort [Unknown]
  - Head discomfort [Unknown]
  - Back pain [Unknown]
  - Rhinorrhoea [Unknown]
